FAERS Safety Report 8177597-1 (Version None)
Quarter: 2012Q1

REPORT INFORMATION
  Report Type: 
  Country: None (occurrence: None)
  Receive Date: 20120301
  Receipt Date: 20120222
  Transmission Date: 20120608
  Serious: Yes (Hospitalization)
  Sender: FDA-Public Use
  Company Number: PHFR2012GB000576

PATIENT
  Sex: Male
  Weight: 74 kg

DRUGS (3)
  1. CLOZARIL [Suspect]
     Indication: SCHIZOPHRENIA
     Dosage: 350 MG
     Route: 048
     Dates: start: 20070430
  2. HYOSCINE HYDROBROMIDE [Concomitant]
     Indication: SALIVARY HYPERSECRETION
     Dosage: 600 MG
     Route: 048
     Dates: start: 20070101
  3. ASPIRIN [Concomitant]
     Dosage: 75 MG
     Route: 048

REACTIONS (4)
  - PNEUMONIA [None]
  - LOWER RESPIRATORY TRACT INFECTION [None]
  - ATRIAL FIBRILLATION [None]
  - OXYGEN SATURATION DECREASED [None]
